FAERS Safety Report 8480511-2 (Version None)
Quarter: 2012Q3

REPORT INFORMATION
  Report Type: 
  Country: None (occurrence: None)
  Receive Date: 20120702
  Receipt Date: 20120620
  Transmission Date: 20120928
  Serious: No
  Sender: FDA-Public Use
  Company Number: US-BIOGENIDEC-2012BI020438

PATIENT
  Age: 37 Year
  Sex: Female

DRUGS (1)
  1. TYSABRI [Suspect]
     Indication: MULTIPLE SCLEROSIS
     Route: 042
     Dates: start: 20061025

REACTIONS (6)
  - NEURALGIA [None]
  - OPTIC NEURITIS [None]
  - MIGRAINE [None]
  - FIBROMYALGIA [None]
  - OSTEOARTHRITIS [None]
  - BLINDNESS [None]
